FAERS Safety Report 18701110 (Version 1)
Quarter: 2021Q1

REPORT INFORMATION
  Report Type: Other
  Country: US (occurrence: US)
  Receive Date: 20210105
  Receipt Date: 20210105
  Transmission Date: 20210419
  Serious: No
  Sender: FDA-Public Use
  Company Number: US-NOVA LABORATORIES LIMITED-2103935

PATIENT
  Age: 35 Year
  Sex: Female

DRUGS (4)
  1. PURIXAN [Suspect]
     Active Substance: MERCAPTOPURINE
     Indication: COLITIS MICROSCOPIC
  2. BILE ACID FACTORS (BILE SALTS) [Concomitant]
  3. BUDESONIDE (BUDESONIDE) [Concomitant]
     Active Substance: BUDESONIDE
  4. PREDNISOLONE (PREDNISOLONE) [Concomitant]
     Active Substance: PREDNISOLONE

REACTIONS (1)
  - Off label use [None]
